FAERS Safety Report 9346553 (Version 4)
Quarter: 2014Q3

REPORT INFORMATION
  Report Type: Spontaneous
  Country: US (occurrence: US)
  Receive Date: 20130613
  Receipt Date: 20140702
  Transmission Date: 20150326
  Serious: Yes (Other)
  Sender: FDA-Public Use
  Company Number: US-009507513-1306USA004343

PATIENT
  Sex: Male
  Weight: 95.24 kg

DRUGS (1)
  1. PROPECIA [Suspect]
     Active Substance: FINASTERIDE
     Indication: ANDROGENETIC ALOPECIA
     Dosage: 1 MG, QD
     Route: 048
     Dates: start: 20091010, end: 20110704

REACTIONS (10)
  - Cyclothymic disorder [Unknown]
  - Depression [Unknown]
  - Anxiety [Unknown]
  - Hair transplant [Unknown]
  - Sexual dysfunction [Not Recovered/Not Resolved]
  - Erectile dysfunction [Not Recovered/Not Resolved]
  - Pain in extremity [Unknown]
  - Surgery [Unknown]
  - Gynaecomastia [Not Recovered/Not Resolved]
  - Inguinal hernia [Unknown]

NARRATIVE: CASE EVENT DATE: 2009
